FAERS Safety Report 10061558 (Version 1)
Quarter: 2014Q2

REPORT INFORMATION
  Report Type: Spontaneous
  Country: GB (occurrence: None)
  Receive Date: 20140403
  Receipt Date: 20140403
  Transmission Date: 20141212
  Serious: Yes (Hospitalization)
  Sender: FDA-Public Use
  Company Number: AUR-APL-2014-03942

PATIENT
  Age: 79 Year
  Sex: Female

DRUGS (20)
  1. BISOPROLOL (BISOPROLOL) [Suspect]
     Indication: CARDIAC FAILURE CONGESTIVE
     Route: 048
  2. ALENDRONATE (ALENDRONATE SODIUM) [Concomitant]
  3. ALLOPURINOL (ALLOPURINOL) [Concomitant]
  4. AMITRIPTYLINE (AMITRIPTYLINE) [Concomitant]
  5. APIXABAN (APIXABAN) [Concomitant]
  6. CARBOCISTEINE (CARBOCISTEINE) [Concomitant]
  7. CO-AMOXICLAV (SPEKTRAMOX) [Concomitant]
  8. CO-CODAMOL (PANADEINE CO) [Concomitant]
  9. DIGOXIN (DIGOXIN) [Concomitant]
  10. FUROSEMIDE (FUROSEMIDE) [Concomitant]
  11. LACTULOSE (LACTULOSE) [Concomitant]
  12. LANSOPRAZOLE (LANSOPRAZOLE) [Concomitant]
  13. MULTIVITAMIN (VIGRAN) [Concomitant]
  14. STAR PHARMS CALCICHEW D3 FORTE (LEKOVIT CA) [Concomitant]
  15. PREDNISOLONE (PREDNISOLONE) [Concomitant]
  16. QUININE SULFATE (QUININE SULFATE) [Concomitant]
  17. SALBUTAMOL (SALBUTAMOL) [Concomitant]
  18. SENNA (SENNA ALEXANDRINA) [Concomitant]
  19. SIMVASTATIN (SIMVASTATIN) [Concomitant]
  20. SPIRONOLACTONE (SPIRONOLACTONE) [Concomitant]

REACTIONS (1)
  - Dyspnoea [None]
